FAERS Safety Report 25779053 (Version 1)
Quarter: 2025Q3

REPORT INFORMATION
  Report Type: Spontaneous
  Country: CN (occurrence: CN)
  Receive Date: 20250909
  Receipt Date: 20250909
  Transmission Date: 20251020
  Serious: Yes (Other)
  Sender: PFIZER
  Company Number: CN-PFIZER INC-PV202500107922

PATIENT
  Age: 53 Year
  Sex: Male
  Weight: 65 kg

DRUGS (2)
  1. TYGACIL [Suspect]
     Active Substance: TIGECYCLINE
     Indication: Pneumonia klebsiella
     Dosage: 50.000 MG, 2X/DAY
     Route: 041
     Dates: start: 20250821, end: 20250829
  2. SODIUM CHLORIDE [Concomitant]
     Active Substance: SODIUM CHLORIDE
     Indication: Vehicle solution use
     Dosage: 100.000 ML, 2X/DAY
     Route: 041
     Dates: start: 20250821, end: 20250829

REACTIONS (2)
  - Diarrhoea [Recovering/Resolving]
  - Dysbiosis [Recovering/Resolving]

NARRATIVE: CASE EVENT DATE: 20250827
